FAERS Safety Report 11603252 (Version 5)
Quarter: 2015Q4

REPORT INFORMATION
  Report Type: Report from Study
  Country: ZA (occurrence: ZA)
  Receive Date: 20151006
  Receipt Date: 20151206
  Transmission Date: 20160304
  Serious: Yes (Hospitalization)
  Sender: FDA-Public Use
  Company Number: PHHY2015ZA114063

PATIENT
  Age: 51 Year
  Sex: Female

DRUGS (1)
  1. GILENYA [Suspect]
     Active Substance: FINGOLIMOD HYDROCHLORIDE
     Indication: MULTIPLE SCLEROSIS
     Dosage: 0.5 MG, QD
     Route: 048
     Dates: start: 20150915

REACTIONS (9)
  - Headache [Recovered/Resolved]
  - Blood pressure decreased [Unknown]
  - Depressed mood [Recovered/Resolved]
  - Paraesthesia [Recovered/Resolved]
  - Dizziness postural [Unknown]
  - Heart rate decreased [Unknown]
  - Bradycardia [Recovered/Resolved]
  - Back pain [Recovered/Resolved]
  - Nausea [Unknown]

NARRATIVE: CASE EVENT DATE: 20150915
